FAERS Safety Report 9474745 (Version 4)
Quarter: 2014Q2

REPORT INFORMATION
  Report Type: Spontaneous
  Country: SE (occurrence: SE)
  Receive Date: 20130823
  Receipt Date: 20140409
  Transmission Date: 20141212
  Serious: Yes (Other)
  Sender: FDA-Public Use
  Company Number: SE-PFIZER INC-2012316419

PATIENT
  Age: 75 Year
  Sex: Male

DRUGS (13)
  1. BOSUTINIB [Suspect]
     Indication: CHRONIC MYELOID LEUKAEMIA
     Dosage: 100 MG, DAILY
     Route: 048
     Dates: start: 20121108
  2. BOSUTINIB [Suspect]
     Dosage: 300 MG, 1X/DAY
     Route: 048
     Dates: start: 20121122, end: 20121123
  3. BOSUTINIB [Suspect]
     Dosage: 100 MG, 1X/DAY
     Route: 048
     Dates: start: 20121126, end: 20121210
  4. BOSUTINIB [Suspect]
     Dosage: 200 MG, 1X/DAY
     Route: 048
     Dates: start: 20121211, end: 20121216
  5. BOSUTINIB [Suspect]
     Dosage: 300 MG, 1X/DAY
     Route: 048
     Dates: start: 20121217, end: 20131022
  6. EZETIMIBE [Suspect]
     Indication: PROPHYLAXIS
     Dosage: 10 MG, 1X/DAY
     Route: 048
     Dates: start: 2012
  7. METOPROLOL [Concomitant]
     Dosage: UNK
  8. ACETYLSALICYLIC ACID [Concomitant]
     Dosage: LOW DOSE
  9. TICAGRELOR [Concomitant]
     Dosage: UNK
  10. FUROSEMIDE [Concomitant]
     Dosage: UNK
  11. SPIRONOLACTONE [Concomitant]
     Dosage: UNK
  12. PARICALCITOL [Concomitant]
     Dosage: UNK
  13. ALLOPURINOL [Concomitant]
     Dosage: UNK

REACTIONS (8)
  - Renal failure [Not Recovered/Not Resolved]
  - Gastroenteritis [Unknown]
  - Diarrhoea [Recovered/Resolved]
  - Alanine aminotransferase increased [Recovered/Resolved]
  - Aspartate aminotransferase increased [Recovered/Resolved]
  - Alanine aminotransferase increased [Recovered/Resolved]
  - Aspartate aminotransferase increased [Recovered/Resolved]
  - Nausea [Unknown]
